FAERS Safety Report 5295107-3 (Version None)
Quarter: 2007Q2

REPORT INFORMATION
  Report Type: 
  Country: None (occurrence: None)
  Receive Date: 20070412
  Receipt Date: 20070402
  Transmission Date: 20071010
  Serious: Yes (Other)
  Sender: FDA-Public Use
  Company Number: 2007AP02019

PATIENT
  Age: 25 Year
  Sex: Male

DRUGS (3)
  1. OMEPRAL [Suspect]
     Indication: DUODENAL ULCER
     Route: 048
     Dates: start: 20070223, end: 20070309
  2. NOVORAPID [Concomitant]
     Route: 058
     Dates: start: 20070220
  3. FERO-GRADUMET [Concomitant]
     Route: 048
     Dates: start: 20070224, end: 20070315

REACTIONS (2)
  - GRANULOCYTOPENIA [None]
  - WHITE BLOOD CELL COUNT DECREASED [None]
